FAERS Safety Report 24300359 (Version 1)
Quarter: 2024Q3

REPORT INFORMATION
  Report Type: Report from Study
  Country: CA (occurrence: CA)
  Receive Date: 20240909
  Receipt Date: 20240909
  Transmission Date: 20241017
  Serious: Yes (Hospitalization)
  Sender: ABBVIE
  Company Number: CA-ABBVIE-5907213

PATIENT
  Age: 42 Year
  Sex: Female

DRUGS (1)
  1. SKYRIZI [Suspect]
     Active Substance: RISANKIZUMAB-RZAA
     Indication: Crohn^s disease
     Route: 058
     Dates: start: 20230502

REACTIONS (6)
  - Pain [Unknown]
  - Transaminases increased [Unknown]
  - Hepatic enzyme increased [Unknown]
  - Abdominal pain [Unknown]
  - Irritable bowel syndrome [Unknown]
  - Crohn^s disease [Unknown]
